FAERS Safety Report 9002200 (Version 1)
Quarter: 2013Q1

REPORT INFORMATION
  Report Type: Spontaneous
  Country: US (occurrence: None)
  Receive Date: 20130103
  Receipt Date: 20130103
  Transmission Date: 20140127
  Serious: Yes (Death)
  Sender: FDA-Public Use
  Company Number: None

PATIENT
  Age: 69 Year
  Sex: Male
  Weight: 82.7 kg

DRUGS (2)
  1. CETUXIMAB [Suspect]
     Indication: NON-SMALL CELL LUNG CANCER
     Route: 042
     Dates: start: 20121102
  2. RIDAFORALIMUS [Suspect]
     Dosage: NEVER RECEIVED  -  20MG/DAY D1-5, PO
     Route: 048

REACTIONS (4)
  - Drug hypersensitivity [None]
  - Lymphangiosis carcinomatosa [None]
  - Performance status decreased [None]
  - Disease progression [None]
